FAERS Safety Report 25887779 (Version 1)
Quarter: 2025Q4

REPORT INFORMATION
  Report Type: Spontaneous
  Country: GB (occurrence: GB)
  Receive Date: 20251007
  Receipt Date: 20251007
  Transmission Date: 20260118
  Serious: Yes (Other)
  Sender: JUBILANT
  Company Number: None

PATIENT

DRUGS (8)
  1. DONEPEZIL HYDROCHLORIDE [Suspect]
     Active Substance: DONEPEZIL HYDROCHLORIDE
     Indication: Product used for unknown indication
     Dosage: 5 MG, UNK
     Route: 065
     Dates: start: 20250916
  2. ALBUTEROL [Concomitant]
     Active Substance: ALBUTEROL
     Indication: Product used for unknown indication
     Dosage: UNK UNK, AS NECESSARY (INHALE 2 DOSES AS NEEDED)
     Route: 065
     Dates: start: 20250625, end: 20250820
  3. CANDESARTAN [Concomitant]
     Active Substance: CANDESARTAN
     Indication: Product used for unknown indication
     Dosage: UNK UNK, ONCE PER DAY
     Route: 065
     Dates: start: 20241104
  4. CLOPIDOGREL [Concomitant]
     Active Substance: CLOPIDOGREL BISULFATE
     Indication: Product used for unknown indication
     Dosage: UNK UNK, ONCE PER DAY
     Route: 065
     Dates: start: 20241104
  5. METFORMIN [Concomitant]
     Active Substance: METFORMIN HYDROCHLORIDE
     Indication: Product used for unknown indication
     Dosage: TAKE ONE TWICE DAILY WITH BREAKFAST AND EVENING...
     Route: 065
     Dates: start: 20241104
  6. SYSTANE (HYPROMELLOSE 2910 (4000 MPA.S)) [Concomitant]
     Active Substance: HYPROMELLOSE 2910 (4000 MPA.S)
     Indication: Product used for unknown indication
     Dosage: UNK,  UNK (APPLY THREE TIMES A DAY INTO BOTH EYES)
     Route: 065
     Dates: start: 20241104
  7. CARBOMER [Concomitant]
     Active Substance: CARBOMER
     Indication: Product used for unknown indication
     Dosage: UNK UNK, APPLY TWICE DAILY
     Route: 065
     Dates: start: 20241104
  8. DAPAGLIFLOZIN [Concomitant]
     Active Substance: DAPAGLIFLOZIN
     Indication: Product used for unknown indication
     Dosage: (SGLT2) TAKE ONE DAILY
     Route: 065
     Dates: start: 20241105

REACTIONS (1)
  - Bradycardia [Recovered/Resolved]
